FAERS Safety Report 8798261 (Version 1)
Quarter: 2012Q4

REPORT INFORMATION
  Report Type: Spontaneous
  Country: US (occurrence: None)
  Receive Date: 20120917
  Receipt Date: 20120917
  Transmission Date: 20130627
  Serious: No
  Sender: FDA-Public Use
  Company Number: None

PATIENT
  Age: 65 Year
  Sex: Male
  Weight: 111.4 kg

DRUGS (1)
  1. HEPARIN [Suspect]
     Indication: PNEUMONIA
     Dates: start: 20120730, end: 20120801

REACTIONS (1)
  - Thrombocytopenia [None]
